FAERS Safety Report 5571127-6 (Version None)
Quarter: 2007Q4

REPORT INFORMATION
  Report Type: 
  Country: None (occurrence: None)
  Receive Date: 20071221
  Receipt Date: 20061222
  Transmission Date: 20080405
  Serious: No
  Sender: FDA-Public Use
  Company Number: A0625379A

PATIENT
  Age: 36 Year
  Sex: Female

DRUGS (5)
  1. FLONASE [Suspect]
     Dosage: 2SPR PER DAY
     Route: 045
     Dates: start: 20041101
  2. ZYRTEC-D [Concomitant]
  3. ZOLOFT [Concomitant]
  4. FISH OIL [Concomitant]
  5. VITAMIN B [Concomitant]

REACTIONS (5)
  - BLOODY DISCHARGE [None]
  - HYPERSENSITIVITY [None]
  - PHARMACEUTICAL PRODUCT COMPLAINT [None]
  - SINUS HEADACHE [None]
  - SINUSITIS [None]
